FAERS Safety Report 4675737-X (Version None)
Quarter: 2005Q2

REPORT INFORMATION
  Report Type: 
  Country: None (occurrence: None)
  Receive Date: 20050527
  Receipt Date: 20050307
  Transmission Date: 20051028
  Serious: Yes (Life-Threatening)
  Sender: FDA-Public Use
  Company Number: US-BRISTOL-MYERS SQUIBB COMPANY-12888285

PATIENT
  Age: 80 Year
  Sex: Male

DRUGS (14)
  1. ERBITUX [Suspect]
     Indication: RECTAL CANCER METASTATIC
     Route: 042
     Dates: start: 20041217, end: 20041217
  2. BENADRYL [Concomitant]
     Indication: PREMEDICATION
     Route: 042
     Dates: start: 20041217, end: 20041217
  3. DECADRON [Concomitant]
     Indication: PREMEDICATION
     Route: 042
     Dates: start: 20041217, end: 20041217
  4. KYTRIL [Concomitant]
     Indication: PREMEDICATION
     Route: 042
     Dates: start: 20041217, end: 20041217
  5. TAGAMET [Concomitant]
     Indication: PREMEDICATION
     Route: 042
     Dates: start: 20041217, end: 20041217
  6. COLCHICINE [Concomitant]
     Route: 048
  7. LANOXIN [Concomitant]
     Route: 048
  8. METOPROLOL SUCCINATE [Concomitant]
     Route: 048
  9. LISINOPRIL [Concomitant]
     Route: 048
  10. SODIUM BICARBONATE [Concomitant]
     Route: 048
  11. IMDUR [Concomitant]
     Route: 048
  12. PROTONIX [Concomitant]
     Route: 048
  13. ASPIRIN [Concomitant]
     Route: 048
  14. LASIX [Concomitant]
     Route: 048

REACTIONS (1)
  - INFUSION RELATED REACTION [None]
